FAERS Safety Report 8589012-4 (Version None)
Quarter: 2012Q3

REPORT INFORMATION
  Report Type: 
  Country: None (occurrence: None)
  Receive Date: 20120813
  Receipt Date: 20120606
  Transmission Date: 20120928
  Serious: No
  Sender: FDA-Public Use
  Company Number: US-009507513-2012SP025073

PATIENT

DRUGS (1)
  1. MIRALAX [Suspect]
     Indication: CONSTIPATION
     Dosage: 17 G, QD
     Route: 048
     Dates: start: 20120430

REACTIONS (4)
  - ABDOMINAL DISTENSION [None]
  - FLATULENCE [None]
  - DRUG INEFFECTIVE [None]
  - NAUSEA [None]
